FAERS Safety Report 11649335 (Version 1)
Quarter: 2015Q4

REPORT INFORMATION
  Report Type: Spontaneous
  Country: IN (occurrence: IN)
  Receive Date: 20151021
  Receipt Date: 20151021
  Transmission Date: 20160304
  Serious: Yes (Other)
  Sender: FDA-Public Use
  Company Number: IN-JNJFOC-20151011267

PATIENT

DRUGS (1)
  1. REMICADE [Suspect]
     Active Substance: INFLIXIMAB
     Indication: ANKYLOSING SPONDYLITIS
     Dosage: INFLIXIMAB AT 0,2 AND 6 WEEKS AND MAINTIANING DOSES AT 8 WEEKS AFTER THE INDUCTION DOSE.
     Route: 042

REACTIONS (1)
  - Extrapulmonary tuberculosis [Unknown]
